FAERS Safety Report 5514294-2 (Version None)
Quarter: 2007Q4

REPORT INFORMATION
  Report Type: 
  Country: None (occurrence: None)
  Receive Date: 20071106
  Receipt Date: 20070622
  Transmission Date: 20080405
  Serious: Yes (Other)
  Sender: FDA-Public Use
  Company Number: US200706005208

PATIENT
  Age: 44 Year
  Sex: Female
  Weight: 113.4 kg

DRUGS (10)
  1. PROZAC [Suspect]
     Indication: OBSESSIVE-COMPULSIVE DISORDER
     Dosage: SEE IMAGE
     Dates: end: 20061201
  2. PROZAC [Suspect]
     Indication: OBSESSIVE-COMPULSIVE DISORDER
     Dosage: SEE IMAGE
     Dates: start: 20061201, end: 20070601
  3. PROZAC [Suspect]
     Indication: OBSESSIVE-COMPULSIVE DISORDER
     Dosage: SEE IMAGE
     Dates: start: 20070601
  4. PROZAC [Suspect]
     Indication: OBSESSIVE-COMPULSIVE DISORDER
     Dosage: SEE IMAGE
     Dates: start: 20070601
  5. TOPAMAX [Concomitant]
  6. CRESTOR [Concomitant]
  7. ASPIRIN [Concomitant]
  8. MINITRAN [Concomitant]
  9. VIT C (ASCORBIC ACID) [Concomitant]
  10. MULTIVITAMIN [Concomitant]

REACTIONS (6)
  - DEPRESSION [None]
  - DRUG LEVEL INCREASED [None]
  - FEELING JITTERY [None]
  - HUNGER [None]
  - INSOMNIA [None]
  - SUICIDAL IDEATION [None]
